FAERS Safety Report 10590368 (Version 2)
Quarter: 2014Q4

REPORT INFORMATION
  Report Type: Other
  Country: IT (occurrence: IT)
  Receive Date: 20141118
  Receipt Date: 20141216
  Transmission Date: 20150529
  Serious: Yes (Hospitalization)
  Sender: FDA-Public Use
  Company Number: IT-MYLANLABS-2014M1010159

PATIENT

DRUGS (7)
  1. HYDROCHLOROTHIAZIDE\VALSARTAN [Suspect]
     Active Substance: HYDROCHLOROTHIAZIDE\VALSARTAN
     Indication: ESSENTIAL HYPERTENSION
     Dosage: UNK
     Route: 048
  2. LEVOBREN [Concomitant]
     Active Substance: LEVOSULPIRIDE
     Indication: PRODUCT USED FOR UNKNOWN INDICATION
     Dosage: UNK
  3. ALPRAZIG [Concomitant]
     Indication: PRODUCT USED FOR UNKNOWN INDICATION
     Dosage: UNK
  4. ALLOPURINOL. [Concomitant]
     Active Substance: ALLOPURINOL
     Indication: PRODUCT USED FOR UNKNOWN INDICATION
     Dosage: UNK
  5. LASIX [Suspect]
     Active Substance: FUROSEMIDE
     Indication: ESSENTIAL HYPERTENSION
     Dosage: UNK
     Route: 048
  6. PANTOPRAZOLE SODIUM [Concomitant]
     Active Substance: PANTOPRAZOLE SODIUM
     Indication: PRODUCT USED FOR UNKNOWN INDICATION
     Dosage: UNK
  7. SERTRALINA MYLAN GENERICS 50MG [Suspect]
     Active Substance: SERTRALINE HYDROCHLORIDE
     Indication: DEPRESSION
     Dosage: 50 MG, QD
     Route: 048
     Dates: start: 20130720, end: 20130725

REACTIONS (2)
  - Hyponatraemic syndrome [Recovered/Resolved]
  - Apraxia [Recovered/Resolved]

NARRATIVE: CASE EVENT DATE: 20130725
